FAERS Safety Report 21190218 (Version 1)
Quarter: 2022Q3

REPORT INFORMATION
  Report Type: Report from Study
  Country: FR (occurrence: FR)
  Receive Date: 20220809
  Receipt Date: 20220809
  Transmission Date: 20221027
  Serious: Yes (Hospitalization, Other)
  Sender: FDA-Public Use
  Company Number: FR-ROCHE-2861421

PATIENT
  Age: 68 Year
  Sex: Female

DRUGS (8)
  1. BEVACIZUMAB [Suspect]
     Active Substance: BEVACIZUMAB
     Indication: Non-small cell lung cancer
     Dosage: 1000 MG
     Route: 042
     Dates: start: 20210323, end: 20210323
  2. BEVACIZUMAB [Suspect]
     Active Substance: BEVACIZUMAB
     Dosage: 950 MG
     Route: 042
     Dates: start: 20210511, end: 20210511
  3. BEVACIZUMAB [Suspect]
     Active Substance: BEVACIZUMAB
     Dosage: 975 MG
     Route: 042
     Dates: start: 20210413, end: 20210413
  4. ATEZOLIZUMAB [Suspect]
     Active Substance: ATEZOLIZUMAB
     Indication: Non-small cell lung cancer
     Dosage: 4 CYCLES - TOTAL DOSE: 4 800 MGMOST RECENT DATE OF ADMINISTRATION IS 13/APR/2021.
     Route: 042
     Dates: start: 20210323, end: 20210601
  5. PEMETREXED [Concomitant]
     Active Substance: PEMETREXED
     Indication: Non-small cell lung cancer
     Dosage: DAY 1 OF CYCLE OF 21 DAYSMOST RECENT DATE OF ADMINISTRATION IS 13/APR/2021.
     Dates: start: 20210323, end: 20210601
  6. CISPLATIN [Concomitant]
     Active Substance: CISPLATIN
     Indication: Non-small cell lung cancer
     Dosage: UNK
     Dates: start: 20210413, end: 20210511
  7. CISPLATIN [Concomitant]
     Active Substance: CISPLATIN
     Dosage: DAY 1 OF CYCLE OF 21 DAYS MOST RECENT DATE OF ADMINISTRATION IS 13/APR/2021.
     Dates: start: 20210323, end: 20210323
  8. CISPLATIN [Concomitant]
     Active Substance: CISPLATIN
     Dosage: EVERY 1 CYCLE(S) DAY 1 OF CYCLE OF 21 DAYS
     Dates: start: 20210601, end: 20210601

REACTIONS (3)
  - Ischaemic stroke [Not Recovered/Not Resolved]
  - Infusion related reaction [Recovered/Resolved]
  - Hypertension [Recovered/Resolved]

NARRATIVE: CASE EVENT DATE: 20210511
